FAERS Safety Report 17845779 (Version 1)
Quarter: 2020Q2

REPORT INFORMATION
  Report Type: Spontaneous
  Country: US (occurrence: US)
  Receive Date: 20200530
  Receipt Date: 20200530
  Transmission Date: 20200714
  Serious: Yes (Life-Threatening, Disabling, Other)
  Sender: FDA-Public Use
  Company Number: None

PATIENT
  Age: 65 Year
  Sex: Female
  Weight: 85.5 kg

DRUGS (7)
  1. ASPIRIN. [Concomitant]
     Active Substance: ASPIRIN
  2. MULTI QUICK SILVER [Concomitant]
  3. VITAMINS A, D, C [Concomitant]
  4. EDARBI [Suspect]
     Active Substance: AZILSARTAN KAMEDOXOMIL
     Indication: HYPERTENSION
     Dosage: ?          QUANTITY:1 TABLET(S);?
     Route: 048
     Dates: end: 20200530
  5. PRAVASTATIN. [Concomitant]
     Active Substance: PRAVASTATIN
  6. PREVACID [Concomitant]
     Active Substance: LANSOPRAZOLE
  7. ALBUTEROL. [Concomitant]
     Active Substance: ALBUTEROL

REACTIONS (2)
  - Blood creatine phosphokinase increased [None]
  - Pain in extremity [None]

NARRATIVE: CASE EVENT DATE: 20200515
